FAERS Safety Report 4994196-0 (Version None)
Quarter: 2006Q1

REPORT INFORMATION
  Report Type: 
  Country: None (occurrence: None)
  Receive Date: 20060313
  Receipt Date: 20050906
  Transmission Date: 20060701
  Serious: Yes (Hospitalization)
  Sender: FDA-Public Use
  Company Number: PHEH2005US09906

PATIENT
  Age: 61 Year
  Sex: Female

DRUGS (2)
  1. TRILEPTAL [Suspect]
     Indication: EPILEPSY
     Dosage: 900 MG,QD,ORAL;1500 MG,ONCE/SINGLE,ORAL
     Route: 048
     Dates: start: 20050905, end: 20050905
  2. TRILEPTAL [Suspect]
     Indication: EPILEPSY
     Dosage: 900 MG,QD,ORAL;1500 MG,ONCE/SINGLE,ORAL
     Route: 048
     Dates: start: 20050401

REACTIONS (8)
  - CLAVICLE FRACTURE [None]
  - DISTURBANCE IN ATTENTION [None]
  - HEADACHE [None]
  - LOWER LIMB FRACTURE [None]
  - OVERDOSE [None]
  - RIB FRACTURE [None]
  - ROAD TRAFFIC ACCIDENT [None]
  - TINNITUS [None]
